FAERS Safety Report 7277672-X (Version None)
Quarter: 2011Q1

REPORT INFORMATION
  Report Type: 
  Country: None (occurrence: None)
  Receive Date: 20110207
  Receipt Date: 20110201
  Transmission Date: 20110831
  Serious: Yes (Hospitalization)
  Sender: FDA-Public Use
  Company Number: GB-JNJFOC-20110200686

PATIENT
  Sex: Female

DRUGS (3)
  1. MICONAZOLE [Suspect]
     Indication: ORAL CANDIDIASIS
     Route: 048
  2. MICONAZOLE [Suspect]
     Route: 048
  3. WARFARIN [Interacting]
     Indication: ANTICOAGULANT THERAPY
     Route: 065

REACTIONS (2)
  - EPISTAXIS [None]
  - DRUG INTERACTION [None]
